FAERS Safety Report 19151309 (Version 2)
Quarter: 2021Q2

REPORT INFORMATION
  Report Type: Spontaneous
  Country: US (occurrence: US)
  Receive Date: 20210419
  Receipt Date: 20210519
  Transmission Date: 20210717
  Serious: No
  Sender: FDA-Public Use
  Company Number: US-KALEO, INC.-2021KL000029

PATIENT
  Age: 17 Year
  Sex: Female

DRUGS (4)
  1. AUVI?Q [Suspect]
     Active Substance: EPINEPHRINE
  2. AUVI?Q [Suspect]
     Active Substance: EPINEPHRINE
  3. AUVI?Q [Suspect]
     Active Substance: EPINEPHRINE
  4. AUVI?Q [Suspect]
     Active Substance: EPINEPHRINE

REACTIONS (1)
  - No adverse event [Not Recovered/Not Resolved]
